FAERS Safety Report 6045674-7 (Version None)
Quarter: 2009Q1

REPORT INFORMATION
  Report Type: 
  Country: None (occurrence: None)
  Receive Date: 20090121
  Receipt Date: 20081021
  Transmission Date: 20090719
  Serious: Yes (Other)
  Sender: FDA-Public Use
  Company Number: JP-SANOFI-SYNTHELABO-A01200813635

PATIENT
  Sex: Female
  Weight: 48.4 kg

DRUGS (9)
  1. SIGMART [Concomitant]
     Indication: ANGINA UNSTABLE
     Route: 048
     Dates: start: 20080205
  2. BLOPRESS [Concomitant]
     Indication: ANGINA UNSTABLE
     Route: 048
     Dates: start: 20080205
  3. TAKEPRON [Concomitant]
     Indication: PROPHYLAXIS
     Route: 048
     Dates: start: 20080205
  4. LASIX [Concomitant]
     Indication: ANGINA UNSTABLE
     Route: 048
     Dates: start: 20080205
  5. HEPARIN [Concomitant]
     Indication: ANGINA UNSTABLE
     Dosage: 10000 UNIT
     Route: 042
     Dates: start: 20080527, end: 20080527
  6. ASPIRIN [Concomitant]
     Indication: ANGINA UNSTABLE
     Route: 048
     Dates: start: 20080205, end: 20080604
  7. ASPIRIN [Concomitant]
     Route: 048
     Dates: start: 20080605
  8. PLAVIX [Suspect]
     Indication: ANGINA UNSTABLE
     Route: 048
     Dates: start: 20080524
  9. ANCARON [Suspect]
     Indication: AORTIC VALVE STENOSIS
     Route: 048
     Dates: start: 20080604, end: 20080619

REACTIONS (5)
  - ALANINE AMINOTRANSFERASE INCREASED [None]
  - ASPARTATE AMINOTRANSFERASE INCREASED [None]
  - BLOOD ALKALINE PHOSPHATASE INCREASED [None]
  - CHOLESTASIS [None]
  - HEPATIC FUNCTION ABNORMAL [None]
